FAERS Safety Report 16949345 (Version 2)
Quarter: 2019Q4

REPORT INFORMATION
  Report Type: Spontaneous
  Country: FR (occurrence: FR)
  Receive Date: 20191023
  Receipt Date: 20191125
  Transmission Date: 20200122
  Serious: Yes (Disabling)
  Sender: FDA-Public Use
  Company Number: FR-TEVA-2019-FR-1126206

PATIENT
  Age: 40 Year
  Sex: Female

DRUGS (2)
  1. DIAZEPAM TEVA 5 MG [Suspect]
     Active Substance: DIAZEPAM
     Indication: MUSCULOSKELETAL STIFFNESS
  2. DIAZEPAM TEVA 5 MG [Suspect]
     Active Substance: DIAZEPAM
     Indication: PAIN IN EXTREMITY
     Dosage: 1 DOSAGE FORM=1 TABLET (THREE TABLETS WITHIN THE EVENING AND THE NIGHT)
     Dates: start: 20190705

REACTIONS (8)
  - Dry mouth [Recovering/Resolving]
  - Heart rate increased [Recovering/Resolving]
  - Product use in unapproved indication [Unknown]
  - Impaired driving ability [Recovering/Resolving]
  - Phobia of driving [Not Recovered/Not Resolved]
  - Therapeutic product effect increased [Unknown]
  - Impaired work ability [Recovering/Resolving]
  - Anxiety [Recovering/Resolving]

NARRATIVE: CASE EVENT DATE: 20190706
